FAERS Safety Report 25963885 (Version 3)
Quarter: 2025Q4

REPORT INFORMATION
  Report Type: Spontaneous
  Country: US (occurrence: US)
  Receive Date: 20251027
  Receipt Date: 20251216
  Transmission Date: 20260118
  Serious: No
  Sender: ADMA BIOLOGICS
  Company Number: US-ADMA BIOLOGICS INC.-US-2025ADM000337

PATIENT
  Age: 77 Year
  Sex: Female

DRUGS (2)
  1. BIVIGAM [Suspect]
     Active Substance: HUMAN IMMUNOGLOBULIN G
     Indication: Immunodeficiency common variable
     Dosage: 600 MG/KG Q4 WEEKS
     Dates: start: 20230912
  2. BIVIGAM [Suspect]
     Active Substance: HUMAN IMMUNOGLOBULIN G
     Dosage: SCHEDULED 600 MG/KG Q4 WEEKS (306 GIVEN OUT OF 476 ORDERED, 56 VIALS X9X2/5, 56/50ML)
     Dates: start: 20251007, end: 20251007

REACTIONS (1)
  - Urticaria [Recovered/Resolved]

NARRATIVE: CASE EVENT DATE: 20251007
